FAERS Safety Report 10251327 (Version 1)
Quarter: 2014Q2

REPORT INFORMATION
  Report Type: Spontaneous
  Country: US (occurrence: US)
  Receive Date: 20140621
  Receipt Date: 20140621
  Transmission Date: 20141212
  Serious: No
  Sender: FDA-Public Use
  Company Number: US-009507513-1406USA009211

PATIENT
  Sex: Female

DRUGS (1)
  1. NEXPLANON [Suspect]
     Indication: CONTRACEPTION
     Dosage: DOSE/FREQUENCY: 68 MG/ ONE ROD IMPLANTED EVERY THREE YEARS
     Dates: start: 20140520

REACTIONS (2)
  - Device dislocation [Unknown]
  - Implant site infection [Unknown]
